FAERS Safety Report 7995917-5 (Version None)
Quarter: 2011Q4

REPORT INFORMATION
  Report Type: 
  Country: None (occurrence: None)
  Receive Date: 20111220
  Receipt Date: 20111215
  Transmission Date: 20120403
  Serious: Yes (Other)
  Sender: FDA-Public Use
  Company Number: CHPA2011NO018189

PATIENT
  Age: 15 Year

DRUGS (7)
  1. SCOPOLAMINE [Suspect]
     Dosage: 1 DF, UNK
     Route: 062
     Dates: start: 20111211
  2. MEDROL [Concomitant]
     Indication: NAUSEA
     Dosage: UNK, UNK
  3. ACETAMINOPHEN [Concomitant]
     Dosage: UNK, UNK
  4. IBUPROFEN [Concomitant]
     Dosage: UNK, UNK
  5. ESOMEPRAZOLE [Concomitant]
     Dosage: UNK, UNK
  6. SCOPOLAMINE [Suspect]
     Indication: NAUSEA
     Dosage: 1 DF, Q72H
     Route: 062
     Dates: start: 20111207, end: 20111211
  7. ONDANSETRON [Concomitant]
     Indication: NAUSEA
     Dosage: UNK, UNK

REACTIONS (4)
  - HEADACHE [None]
  - INAPPROPRIATE SCHEDULE OF DRUG ADMINISTRATION [None]
  - OFF LABEL USE [None]
  - DIPLOPIA [None]
